FAERS Safety Report 8035908-1 (Version None)
Quarter: 2012Q1

REPORT INFORMATION
  Report Type: 
  Country: None (occurrence: None)
  Receive Date: 20120106
  Receipt Date: 20111226
  Transmission Date: 20120608
  Serious: Yes (Death)
  Sender: FDA-Public Use
  Company Number: EU-2011-10576

PATIENT
  Sex: Female
  Weight: 60 kg

DRUGS (8)
  1. ACETYLCYSTEIN (ACETYLCYSTEIN) [Concomitant]
  2. SAMSCA [Suspect]
     Indication: HYPONATRAEMIA
     Dosage: 30 MG MILLIGRAM(S), DAILY DOSE, ORAL
     Route: 048
     Dates: start: 20111106, end: 20111107
  3. SAMSCA [Suspect]
     Indication: HYPONATRAEMIA
     Dosage: 30 MG MILLIGRAM(S), DAILY DOSE, ORAL
     Route: 048
     Dates: start: 20111109, end: 20111110
  4. LAKTULOS (LACTULOSE) [Concomitant]
  5. FUROSEMID (FUROSEMID) [Concomitant]
  6. SPIRONOLACTONE [Concomitant]
  7. ATROVENT [Concomitant]
  8. OMEPRAZOLE [Concomitant]

REACTIONS (1)
  - OFF LABEL USE [None]
